FAERS Safety Report 8049533-X (Version None)
Quarter: 2012Q1

REPORT INFORMATION
  Report Type: 
  Country: None (occurrence: None)
  Receive Date: 20120117
  Receipt Date: 20120110
  Transmission Date: 20120608
  Serious: No
  Sender: FDA-Public Use
  Company Number: US-B.I. PHARMACEUTICALS,INC./RIDGEFIELD-2011-BP-11658BP

PATIENT
  Sex: Female

DRUGS (14)
  1. SPIRIVA [Suspect]
     Indication: CHRONIC OBSTRUCTIVE PULMONARY DISEASE
     Dosage: 18 MCG
     Route: 055
     Dates: start: 20100101
  2. INDERAL [Concomitant]
     Indication: PALPITATIONS
  3. TRANXENE [Concomitant]
     Indication: ANXIETY
     Dosage: 7.5 MG
     Dates: start: 19780101
  4. CLORAZEPATE DIPOTASSIUM [Concomitant]
     Indication: ANXIETY
     Dosage: 22.5 MG
     Route: 048
     Dates: start: 19800101
  5. LEVOTHYROXINE SODIUM [Concomitant]
     Indication: THYROID DISORDER
     Dosage: 0.05 MG
     Route: 048
     Dates: start: 20080101
  6. SYNTHROID [Concomitant]
     Indication: HYPOTHYROIDISM
  7. LEVOTHYROXINE SODIUM [Concomitant]
     Indication: HYPOTHYROIDISM
  8. ASPIRIN [Concomitant]
     Indication: CHEST PAIN
  9. VENTOLIN [Concomitant]
     Indication: CHRONIC OBSTRUCTIVE PULMONARY DISEASE
     Route: 055
     Dates: start: 20110101
  10. SPIRIVA [Suspect]
     Indication: EMPHYSEMA
  11. INDERAL [Concomitant]
     Indication: ANXIETY
     Dosage: 60 MG
     Route: 048
     Dates: start: 19800101
  12. INDERAL [Concomitant]
     Indication: CARDIAC DISORDER
  13. INDERAL [Concomitant]
     Indication: CARDIAC VALVE DISEASE
  14. INDERAL [Concomitant]
     Indication: HYPERTENSION

REACTIONS (12)
  - FATIGUE [None]
  - TREMOR [None]
  - ASTHENIA [None]
  - VISION BLURRED [None]
  - VISUAL ACUITY REDUCED [None]
  - DYSPHONIA [None]
  - HYPERHIDROSIS [None]
  - EMPHYSEMA [None]
  - DYSPNOEA [None]
  - HEADACHE [None]
  - CHRONIC OBSTRUCTIVE PULMONARY DISEASE [None]
  - WEIGHT INCREASED [None]
